FAERS Safety Report 13216272 (Version 1)
Quarter: 2017Q1

REPORT INFORMATION
  Report Type: Report from Study
  Country: None (occurrence: CO)
  Receive Date: 20170209
  Receipt Date: 20170209
  Transmission Date: 20170428
  Serious: Yes (Death)
  Sender: FDA-Public Use
  Company Number: CO-ABBVIE-17P-036-1868473-00

PATIENT
  Sex: Female
  Weight: 1.6 kg

DRUGS (1)
  1. SURVANTA [Suspect]
     Active Substance: BERACTANT
     Indication: ACUTE RESPIRATORY DISTRESS SYNDROME
     Dosage: 1 DOSE
     Route: 065
     Dates: start: 20161229, end: 20161229

REACTIONS (2)
  - Drug ineffective [Fatal]
  - Acute respiratory distress syndrome [Fatal]
